FAERS Safety Report 23099290 (Version 5)
Quarter: 2024Q3

REPORT INFORMATION
  Report Type: Report from Study
  Country: US (occurrence: US)
  Receive Date: 20231024
  Receipt Date: 20240701
  Transmission Date: 20241017
  Serious: Yes (Hospitalization)
  Sender: NOVARTIS
  Company Number: US-002147023-NVSC2023US226811

PATIENT
  Age: 37 Year
  Sex: Female

DRUGS (1)
  1. KESIMPTA [Suspect]
     Active Substance: OFATUMUMAB
     Indication: Multiple sclerosis
     Dosage: 20 MG, UNKNOWN
     Route: 058
     Dates: start: 20231017

REACTIONS (6)
  - Burning sensation [Unknown]
  - Hypertension [Unknown]
  - Heart rate increased [Unknown]
  - Back pain [Unknown]
  - Pain in extremity [Unknown]
  - Pain [Unknown]

NARRATIVE: CASE EVENT DATE: 20231017
